FAERS Safety Report 25780066 (Version 1)
Quarter: 2025Q3

REPORT INFORMATION
  Report Type: Spontaneous
  Country: CN (occurrence: CN)
  Receive Date: 20250909
  Receipt Date: 20250909
  Transmission Date: 20251021
  Serious: Yes (Hospitalization)
  Sender: ABBVIE
  Company Number: CN-ABBVIE-6447517

PATIENT
  Age: 29 Year
  Sex: Female
  Weight: 48 kg

DRUGS (2)
  1. SEVOFLURANE [Suspect]
     Active Substance: SEVOFLURANE
     Indication: Induction and maintenance of anaesthesia
     Dosage: 10 ML?ROUTE OF ADMINISTRATION: RESPIRATORY (INHALATION)?DOSAGE FORM: INHALATION GAS
     Route: 065
     Dates: start: 20250827, end: 20250827
  2. TRAMADOL HYDROCHLORIDE [Suspect]
     Active Substance: TRAMADOL HYDROCHLORIDE
     Indication: Analgesic therapy
     Dosage: 0.1 GRAM
     Route: 030
     Dates: start: 20250827, end: 20250827

REACTIONS (9)
  - Muscle twitching [Recovered/Resolved]
  - Myoclonus [Recovered/Resolved]
  - Loss of consciousness [Recovered/Resolved]
  - Status epilepticus [Unknown]
  - Muscle contractions involuntary [Recovered/Resolved]
  - Tremor [Recovered/Resolved]
  - Eye movement disorder [Recovered/Resolved]
  - Musculoskeletal disorder [Unknown]
  - Lethargy [Unknown]

NARRATIVE: CASE EVENT DATE: 20250827
